FAERS Safety Report 9656592 (Version 1)
Quarter: 2013Q4

REPORT INFORMATION
  Report Type: Spontaneous
  Country: US (occurrence: US)
  Receive Date: 20131030
  Receipt Date: 20131030
  Transmission Date: 20140711
  Serious: No
  Sender: FDA-Public Use
  Company Number: US-GLAXOSMITHKLINE-A1022497A

PATIENT
  Sex: Male

DRUGS (9)
  1. SEREVENT [Suspect]
     Indication: CHRONIC OBSTRUCTIVE PULMONARY DISEASE
     Route: 055
     Dates: start: 2007
  2. ALBUTEROL INHALER [Suspect]
     Indication: CHRONIC OBSTRUCTIVE PULMONARY DISEASE
     Route: 055
  3. METOPROLOL [Concomitant]
  4. CLONIDINE [Concomitant]
  5. ALPRAZOLAM [Concomitant]
  6. GLIPIZIDE [Concomitant]
  7. DILTIAZEM [Concomitant]
  8. CITALOPRAM [Concomitant]
  9. MICARDIS [Concomitant]

REACTIONS (2)
  - Cough [Not Recovered/Not Resolved]
  - Swelling face [Unknown]
